FAERS Safety Report 17687524 (Version 1)
Quarter: 2020Q2

REPORT INFORMATION
  Report Type: Spontaneous
  Country: US (occurrence: US)
  Receive Date: 20200421
  Receipt Date: 20200421
  Transmission Date: 20200714
  Serious: Yes (Hospitalization)
  Sender: FDA-Public Use
  Company Number: US-ABBVIE-20K-163-3368093-00

PATIENT
  Age: 64 Year
  Sex: Female
  Weight: 58.57 kg

DRUGS (1)
  1. DUOPA [Suspect]
     Active Substance: CARBIDOPA\LEVODOPA
     Indication: PARKINSON^S DISEASE
     Route: 050
     Dates: start: 2013

REACTIONS (11)
  - Weight decreased [Recovering/Resolving]
  - Pain in jaw [Recovered/Resolved]
  - Stoma site discharge [Recovering/Resolving]
  - Stoma site haemorrhage [Recovering/Resolving]
  - Hiatus hernia [Recovered/Resolved]
  - Ulcer [Recovering/Resolving]
  - Red blood cell abnormality [Recovered/Resolved]
  - Stoma site infection [Recovering/Resolving]
  - Stoma site erythema [Recovering/Resolving]
  - Stoma site pain [Recovering/Resolving]
  - Device leakage [Unknown]

NARRATIVE: CASE EVENT DATE: 201911
